FAERS Safety Report 4331335-9 (Version None)
Quarter: 2004Q2

REPORT INFORMATION
  Report Type: 
  Country: None (occurrence: None)
  Receive Date: 20040402
  Receipt Date: 20040402
  Transmission Date: 20050107
  Serious: Yes (Hospitalization)
  Sender: FDA-Public Use
  Company Number: None

PATIENT
  Sex: Female

DRUGS (3)
  1. TAXOL [Suspect]
     Indication: PANCREATIC CARCINOMA
     Dosage: 40 MG /M2 IV QWK X6
     Route: 042
     Dates: start: 20040209, end: 20040308
  2. GEMZAR [Suspect]
     Indication: PANCREATIC CARCINOMA
     Dosage: 75 MG/M2 IV Q WK X 6
     Route: 042
     Dates: start: 20040209, end: 20040308
  3. TARCEVA [Suspect]
     Indication: PANCREATIC CARCINOMA
     Dosage: 75 MG PO QD
     Route: 048
     Dates: start: 20040209, end: 20040313

REACTIONS (1)
  - DEEP VEIN THROMBOSIS [None]
